FAERS Safety Report 12282111 (Version 1)
Quarter: 2016Q2

REPORT INFORMATION
  Report Type: Spontaneous
  Country: US (occurrence: None)
  Receive Date: 20160418
  Receipt Date: 20160418
  Transmission Date: 20160815
  Serious: Yes (Death)
  Sender: FDA-Public Use
  Company Number: None

PATIENT
  Age: 72 Year
  Sex: Male
  Weight: 49.9 kg

DRUGS (1)
  1. MORPHINE SULFATE PHARMAKON PHARMACEUTICALS, INC. [Suspect]
     Active Substance: MORPHINE SULFATE
     Indication: BILE DUCT CANCER
     Route: 042
     Dates: start: 20160317, end: 20160401

REACTIONS (1)
  - Drug administration error [None]

NARRATIVE: CASE EVENT DATE: 20160317
